FAERS Safety Report 6901812-2 (Version None)
Quarter: 2010Q3

REPORT INFORMATION
  Report Type: 
  Country: None (occurrence: None)
  Receive Date: 20100803
  Receipt Date: 20080324
  Transmission Date: 20110219
  Serious: No
  Sender: FDA-Public Use
  Company Number: US-PFIZER INC-2008026394

PATIENT
  Sex: Male
  Weight: 122.7 kg

DRUGS (15)
  1. LYRICA [Suspect]
     Indication: FIBROMYALGIA
     Route: 048
     Dates: start: 20060801
  2. DOXAZOSIN [Concomitant]
  3. FUROSEMIDE [Concomitant]
  4. LOVASTATIN [Concomitant]
  5. POTASSIUM CHLORIDE [Concomitant]
  6. MORPHINE [Concomitant]
  7. TRAMADOL HYDROCHLORIDE [Concomitant]
  8. DICYCLOMINE [Concomitant]
  9. METOCLOPRAMIDE [Concomitant]
  10. DRUG, UNSPECIFIED [Concomitant]
  11. PREVACID [Concomitant]
  12. CHLOROPHYLLIN SODIUM COPPER COMPLEX [Concomitant]
  13. OMEGA [Concomitant]
  14. ASCORBIC ACID [Concomitant]
  15. VITAMIN D [Concomitant]

REACTIONS (8)
  - ARTHRALGIA [None]
  - DRUG INEFFECTIVE [None]
  - HEADACHE [None]
  - INFLUENZA LIKE ILLNESS [None]
  - NAUSEA [None]
  - VITAMIN D DECREASED [None]
  - VOMITING [None]
  - WEIGHT DECREASED [None]
